FAERS Safety Report 4729160-X (Version None)
Quarter: 2005Q3

REPORT INFORMATION
  Report Type: 
  Country: None (occurrence: None)
  Receive Date: 20050729
  Receipt Date: 20040614
  Transmission Date: 20060218
  Serious: No
  Sender: FDA-Public Use
  Company Number: US-GLAXOSMITHKLINE-A0514533A

PATIENT
  Sex: Female

DRUGS (2)
  1. IMITREX [Suspect]
     Indication: MIGRAINE
     Dosage: 25MG AS REQUIRED
     Route: 048
     Dates: start: 19960101
  2. NO CONCURRENT MEDICATION [Concomitant]

REACTIONS (2)
  - DRUG ADMINISTRATION ERROR [None]
  - DRUG INEFFECTIVE [None]
